FAERS Safety Report 9392740 (Version 4)
Quarter: 2014Q1

REPORT INFORMATION
  Report Type: Report from Study
  Country: CA (occurrence: CA)
  Receive Date: 20130710
  Receipt Date: 20140113
  Transmission Date: 20141002
  Serious: Yes (Hospitalization, Other)
  Sender: FDA-Public Use
  Company Number: CA-JNJFOC-20130704607

PATIENT
  Age: 42 Year
  Sex: Female

DRUGS (3)
  1. SIMPONI [Suspect]
     Indication: PSORIATIC ARTHROPATHY
     Route: 058
     Dates: start: 20111205, end: 20130412
  2. VITAMIN B12 [Concomitant]
     Route: 065
  3. DEPO PROVERA [Concomitant]
     Route: 065

REACTIONS (9)
  - Asthma [Not Recovered/Not Resolved]
  - Pneumonia [Unknown]
  - Systemic lupus erythematosus rash [Not Recovered/Not Resolved]
  - Ulcer [Not Recovered/Not Resolved]
  - Photosensitivity reaction [Not Recovered/Not Resolved]
  - Tinnitus [Not Recovered/Not Resolved]
  - Swelling face [Not Recovered/Not Resolved]
  - Migraine [Not Recovered/Not Resolved]
  - Pyrexia [Not Recovered/Not Resolved]
